FAERS Safety Report 10400198 (Version 2)
Quarter: 2014Q3

REPORT INFORMATION
  Report Type: Spontaneous
  Country: US (occurrence: US)
  Receive Date: 20140821
  Receipt Date: 20140908
  Transmission Date: 20150326
  Serious: No
  Sender: FDA-Public Use
  Company Number: US-009507513-1408USA011966

PATIENT
  Age: 50 Year
  Sex: Female
  Weight: 58.96 kg

DRUGS (1)
  1. OXYTROL FOR WOMEN [Suspect]
     Active Substance: OXYBUTYNIN
     Indication: HYPERTONIC BLADDER
     Dosage: 1 DF, QD
     Route: 062
     Dates: start: 20140801, end: 20140805

REACTIONS (3)
  - Headache [Recovered/Resolved]
  - Drug ineffective [Unknown]
  - Dehydration [Recovered/Resolved]

NARRATIVE: CASE EVENT DATE: 20140802
